FAERS Safety Report 8179598-6 (Version None)
Quarter: 2012Q1

REPORT INFORMATION
  Report Type: 
  Country: None (occurrence: None)
  Receive Date: 20120302
  Receipt Date: 20120223
  Transmission Date: 20120608
  Serious: Yes (Hospitalization, Other)
  Sender: FDA-Public Use
  Company Number: US-BAYER-2011-107899

PATIENT
  Age: 33 Year
  Sex: Female
  Weight: 65.76 kg

DRUGS (33)
  1. ACETAMINOPHEN AND HYDROCODONE BITARTRATE [Concomitant]
     Indication: PAIN
     Dosage: UNK UNK, Q4HR
     Route: 048
     Dates: start: 20100221
  2. ZOCOR [Concomitant]
     Indication: BLOOD CHOLESTEROL INCREASED
     Dosage: DAILY DOSE 40 MG
     Route: 048
     Dates: start: 20100528
  3. SUDAFED 12 HOUR [Concomitant]
     Dosage: UNK
     Route: 048
     Dates: start: 20100528
  4. IMITREX [Concomitant]
     Indication: MIGRAINE
     Dosage: UNK
     Route: 048
     Dates: start: 19980101
  5. DOXYCYCLINE [Concomitant]
     Indication: ANTIBIOTIC THERAPY
     Dosage: 100 MG, BID
     Route: 048
     Dates: start: 20100414
  6. OXYCODONE HCL AND ACETAMINOPHEN [Concomitant]
     Indication: BREAKTHROUGH PAIN
     Dosage: UNK
     Route: 048
     Dates: start: 20100414
  7. LITHIUM CARBONATE [Concomitant]
     Indication: BIPOLAR DISORDER
     Dosage: UNK
     Dates: start: 20100105, end: 20100422
  8. SPIRONOLACTONE [Concomitant]
     Indication: OEDEMA
     Dosage: 200 MG, BID
     Route: 048
     Dates: start: 20100330
  9. MULTI-VITAMIN [Concomitant]
     Dosage: UNK
     Route: 048
     Dates: start: 20100528
  10. YASMIN [Suspect]
     Dosage: UNK
     Route: 048
     Dates: start: 20070925, end: 20080130
  11. CORGARD [Concomitant]
     Indication: HYPERTENSION
     Dosage: UNK
     Route: 048
     Dates: start: 19940101, end: 20110101
  12. NAPROSYN [Concomitant]
     Indication: PAIN
     Dosage: UNK
     Route: 048
     Dates: start: 20000101
  13. PROCHLORPERAZINE [Concomitant]
     Dosage: 10 MG, UNK
     Route: 048
     Dates: start: 20100413
  14. FLUOXETINE [Concomitant]
     Indication: MENTAL DISORDER
     Dosage: 40 MG, BID
     Route: 048
     Dates: start: 20100422
  15. METOCLOPRAMIDE HYDROCHLORIDE [Concomitant]
     Indication: GASTROOESOPHAGEAL REFLUX DISEASE
     Dosage: 10 MG, Q4HR
     Route: 048
  16. UNCODEABLE ^UNCLASSIFIABLE^ [Concomitant]
     Indication: BLOOD CHOLESTEROL INCREASED
     Dosage: DAILY DOSE 135 MG
     Route: 048
     Dates: start: 20100528
  17. RISPERIDONE [Concomitant]
     Indication: BIPOLAR DISORDER
     Dosage: UNK UNK, QD
     Route: 048
     Dates: start: 20070924, end: 20110914
  18. LITHIUM CARBONICUM [Concomitant]
  19. OXYCONTIN [Concomitant]
     Indication: PAIN
     Dosage: UNK
     Dates: start: 20090814, end: 20100414
  20. OXYCONTIN [Concomitant]
     Dosage: UNK
     Route: 048
     Dates: start: 20090814, end: 20110914
  21. TOPIRAMATE [Concomitant]
     Indication: MIGRAINE
     Dosage: 25 MG, TID
     Route: 048
     Dates: start: 20100330
  22. GABAPENTIN [Concomitant]
     Dosage: 300 MG, TID
     Route: 048
     Dates: start: 20100330
  23. HYDROTHIZIDE [Concomitant]
     Indication: DIURETIC THERAPY
     Dosage: UNK
     Route: 048
     Dates: start: 19940101, end: 20110101
  24. ZOLPIDEM [Concomitant]
     Dosage: 5 MG, HS
     Route: 048
     Dates: start: 20100528
  25. PROVIGIL [Concomitant]
     Dosage: 200 MG, BID
     Route: 048
     Dates: start: 20100528
  26. DROSPIRENONE AND ETHINYL ESTRADIOL [Suspect]
     Dosage: UNK
     Route: 048
     Dates: start: 20100501, end: 20110808
  27. PROVENTIL [Concomitant]
     Indication: ASTHMA
     Dosage: UNK
     Route: 055
     Dates: start: 19860101, end: 20100101
  28. CLONAZEPAM [Concomitant]
     Indication: PANIC ATTACK
     Dosage: 1 MG, BID
     Route: 048
     Dates: start: 20070924, end: 20100414
  29. BENADRYL [Concomitant]
     Indication: MULTIPLE ALLERGIES
     Dosage: DAILY DOSE 25 MG
     Route: 048
     Dates: start: 20100528
  30. MAXALT [Concomitant]
     Indication: MIGRAINE
     Dosage: 10 MG, UNK
     Route: 048
     Dates: start: 19980101
  31. FLUTICASONE PROPIONATE [Concomitant]
     Indication: MULTIPLE ALLERGIES
     Dosage: 50 ?G, UNK
     Route: 045
     Dates: start: 20100413
  32. SUCRALFATE [Concomitant]
     Indication: GASTROOESOPHAGEAL REFLUX DISEASE
     Dosage: 1 MG, Q4HR
     Route: 048
     Dates: start: 20100528
  33. METOPROLOL SUCCINATE [Concomitant]
     Indication: HYPERTENSION
     Dosage: DAILY DOSE 50 MG
     Route: 048
     Dates: start: 20100528

REACTIONS (4)
  - BIPOLAR DISORDER [None]
  - CHOLELITHIASIS [None]
  - INJURY [None]
  - PAIN [None]
